FAERS Safety Report 9865241 (Version 2)
Quarter: 2014Q1

REPORT INFORMATION
  Report Type: Spontaneous
  Country: US (occurrence: US)
  Receive Date: 20140203
  Receipt Date: 20140203
  Transmission Date: 20141002
  Serious: No
  Sender: FDA-Public Use
  Company Number: US-ALLERGAN-1300195US

PATIENT
  Age: 72 Year
  Sex: Female

DRUGS (9)
  1. RESTASIS [Suspect]
     Indication: DRY EYE
     Dosage: 2 GTT, BID
     Route: 047
     Dates: start: 2012
  2. FLAGYL /00012501/ [Suspect]
     Indication: PRODUCT USED FOR UNKNOWN INDICATION
  3. CIPRO [Suspect]
     Indication: PRODUCT USED FOR UNKNOWN INDICATION
  4. CALCIUM [Concomitant]
     Indication: PRODUCT USED FOR UNKNOWN INDICATION
     Route: 048
  5. VITAMIN D                          /00107901/ [Concomitant]
     Indication: PRODUCT USED FOR UNKNOWN INDICATION
  6. SYNTHYROID [Concomitant]
     Indication: PRODUCT USED FOR UNKNOWN INDICATION
  7. EVOXAC [Concomitant]
     Indication: SJOGREN^S SYNDROME
     Dosage: 30 MG, BID
     Route: 048
  8. REFRESH SENSITIVE [Concomitant]
     Indication: DRY EYE
     Dosage: UNK, PRN
     Route: 047
  9. MULTIVITAMIN                       /00097801/ [Concomitant]
     Indication: PRODUCT USED FOR UNKNOWN INDICATION

REACTIONS (2)
  - Paranasal sinus hypersecretion [Recovered/Resolved]
  - Abdominal discomfort [Recovered/Resolved]
